FAERS Safety Report 7817468-0 (Version None)
Quarter: 2011Q4

REPORT INFORMATION
  Report Type: 
  Country: None (occurrence: None)
  Receive Date: 20111017
  Receipt Date: 20111005
  Transmission Date: 20120403
  Serious: Yes (Hospitalization, Other)
  Sender: FDA-Public Use
  Company Number: JP-ROCHE-610049

PATIENT
  Sex: Male

DRUGS (61)
  1. PREDNISOLONE [Suspect]
     Route: 048
     Dates: start: 20080807, end: 20080813
  2. PREDNISOLONE [Suspect]
     Dosage: FORM: ORAL FORMULATION (NOT OTHERWISE SPECIFIED).
     Route: 048
     Dates: start: 20081003, end: 20081114
  3. PREDNISOLONE [Suspect]
     Route: 048
     Dates: start: 20100507, end: 20100617
  4. LISINOPRIL [Concomitant]
     Route: 048
     Dates: start: 20090620, end: 20090706
  5. AMLODIPINE [Concomitant]
     Route: 048
  6. TIMOPTOL-XE [Concomitant]
     Dosage: FORM; DROPS (INTRAOCULAR); NOTE: PROPER QUANTITY
     Route: 047
  7. ACTEMRA [Suspect]
     Indication: JUVENILE ARTHRITIS
     Route: 041
     Dates: start: 20080715, end: 20080812
  8. ACTEMRA [Suspect]
     Route: 041
     Dates: start: 20080909, end: 20080909
  9. PREDNISOLONE [Suspect]
     Dosage: FORM: ORAL FORMULATION (NOT OTHERWISE SPECIFIED).
     Route: 048
  10. MUCOSTA [Concomitant]
     Dosage: FORM: ORAL FORMULATION (NOT OTHERWISE SPECIFIED).
     Route: 048
     Dates: start: 20080702, end: 20081016
  11. FLOMOX [Concomitant]
     Route: 048
     Dates: start: 20080806, end: 20080811
  12. PREDNISOLONE [Suspect]
     Dosage: FORM: ORAL FORMULATION (NOT OTHERWISE SPECIFIED).
     Route: 048
     Dates: start: 20080814, end: 20080826
  13. PREDNISOLONE [Suspect]
     Dosage: FORM: ORAL FORMULATION (NOT OTHERWISE SPECIFIED).
     Route: 048
     Dates: start: 20080910, end: 20080919
  14. PREDNISOLONE [Suspect]
     Route: 048
     Dates: start: 20100319, end: 20100506
  15. PREDNISOLONE [Suspect]
     Route: 048
     Dates: start: 20100723, end: 20101110
  16. FAMOTIDINE [Concomitant]
     Route: 048
     Dates: start: 20080702, end: 20081002
  17. ALFAROL [Concomitant]
     Dosage: DRUG NAME REPORTED AS ALFAROL CAPSULES
     Route: 048
     Dates: start: 20080710, end: 20080715
  18. LISINOPRIL [Concomitant]
     Route: 048
     Dates: start: 20080714, end: 20090306
  19. LISINOPRIL [Concomitant]
     Route: 048
     Dates: start: 20090707, end: 20090708
  20. ACTEMRA [Suspect]
     Route: 041
     Dates: start: 20081031, end: 20081031
  21. ACTEMRA [Suspect]
     Route: 041
     Dates: start: 20081114, end: 20081114
  22. ACTEMRA [Suspect]
     Route: 041
     Dates: start: 20090123, end: 20090123
  23. ACTEMRA [Suspect]
     Route: 041
     Dates: start: 20090220, end: 20090220
  24. ACTEMRA [Suspect]
     Route: 041
  25. PREDNISOLONE [Suspect]
     Route: 048
     Dates: start: 20110106, end: 20110203
  26. PREDNISOLONE [Suspect]
     Route: 048
     Dates: start: 20110204, end: 20110303
  27. TIMOLOL MALEATE [Concomitant]
     Dosage: DRUG: RYSMON TG; FORM: DROPS (INTRAOCULAR); NOTE : PROPER QUANTITY
     Route: 047
  28. GENTAMICIN SULFATE [Concomitant]
     Dosage: NOTE: PROPER QUANTITY
     Route: 061
     Dates: start: 20080702, end: 20081016
  29. FELBINAC [Concomitant]
     Dosage: DRUG: SELTOUCH; NOTE: PROPER QUANTITY. FORM: TAPE
     Route: 061
     Dates: start: 20080707, end: 20090604
  30. TRAVOPROST [Concomitant]
     Dosage: DRUG: TRAVATANZ; FORM: DROPS (INTRAOCULAR), NOTE: PROPER QUANTITY
     Route: 047
  31. ACTEMRA [Suspect]
     Route: 041
     Dates: start: 20080826, end: 20080826
  32. ACTEMRA [Suspect]
     Route: 041
     Dates: start: 20080919, end: 20081016
  33. ACTEMRA [Suspect]
     Route: 041
     Dates: start: 20081211, end: 20081225
  34. ACTEMRA [Suspect]
     Route: 041
     Dates: start: 20090206, end: 20090206
  35. PREDNISOLONE [Suspect]
     Dosage: FORM: ORAL FORMULATION (NOT OTHERWISE SPECIFIED).
     Route: 048
     Dates: start: 20080827, end: 20080909
  36. PREDNISOLONE [Suspect]
     Dosage: FORM: ORAL FORMULATION (NOT OTHERWISE SPECIFIED).
     Route: 048
     Dates: start: 20081115, end: 20090206
  37. AZUNOL [Concomitant]
     Dosage: NOTE: PROPER QUANTITY
     Route: 061
     Dates: start: 20080703, end: 20081016
  38. HIRUDOID [Concomitant]
     Dosage: NOTE: PROPER QUANTITY
     Route: 061
  39. ACTEMRA [Suspect]
     Route: 041
     Dates: start: 20090605, end: 20090605
  40. ACTEMRA [Suspect]
     Dosage: NOTE: DOSAGE IS UNCERTAIN.
     Route: 041
  41. PREDNISOLONE [Suspect]
     Dosage: FORM: ORAL FORMULATION (NOT OTHERWISE SPECIFIED).
     Route: 048
     Dates: start: 20080731, end: 20080806
  42. PREDNISOLONE [Suspect]
     Dosage: FORM: ORAL FORMULATION (NOT OTHERWISE SPECIFIED).
     Route: 048
     Dates: start: 20080920, end: 20081002
  43. PREDNISOLONE [Suspect]
     Route: 048
     Dates: start: 20100104, end: 20100318
  44. PREDNISOLONE [Suspect]
     Route: 048
     Dates: start: 20100618, end: 20100722
  45. PREDNISOLONE [Suspect]
     Route: 048
     Dates: start: 20101111, end: 20110105
  46. LAXOBERON [Concomitant]
     Dosage: NOTE: PROPER QUANTITY
     Route: 048
     Dates: start: 20080704, end: 20081016
  47. GLAKAY [Concomitant]
     Route: 048
  48. AMLODIPINE [Concomitant]
     Route: 048
     Dates: start: 20080728, end: 20080909
  49. KETOPROFEN [Concomitant]
     Dosage: DRUG NAME REPORTED AS MOHRUS TAPE, FORM:TAPE, PROPER QUANTITY
     Route: 061
  50. ACTEMRA [Suspect]
     Route: 041
     Dates: start: 20081127, end: 20081127
  51. ACTEMRA [Suspect]
     Route: 041
     Dates: start: 20090619, end: 20090619
  52. PREDNISOLONE [Suspect]
     Indication: JUVENILE ARTHRITIS
     Dosage: FORM: ORAL FORMULATION (NOT OTHERWISE SPECIFIED).
     Route: 048
  53. PREDNISOLONE [Suspect]
     Dosage: FORM: ORAL FORMULATION (NOT OTHERWISE SPECIFIED).
     Route: 048
     Dates: start: 20080724, end: 20080730
  54. XALATAN [Concomitant]
     Dosage: FORM: DROPS (INTRAOCULAR); NOTE: PROPER QUANTITY
     Route: 047
  55. IBRUPROFEN [Concomitant]
     Route: 048
     Dates: start: 20080705, end: 20080709
  56. ALFAROL [Concomitant]
     Route: 048
     Dates: start: 20100306, end: 20100506
  57. LISINOPRIL [Concomitant]
     Route: 048
     Dates: start: 20090307, end: 20090522
  58. ACTEMRA [Suspect]
     Route: 041
     Dates: start: 20090306, end: 20090522
  59. MUCOSTA [Concomitant]
     Route: 048
  60. IBRUPROFEN [Concomitant]
     Route: 048
     Dates: start: 20080710, end: 20081002
  61. IBRUPROFEN [Concomitant]
     Route: 048
     Dates: start: 20081003, end: 20081016

REACTIONS (8)
  - PARONYCHIA [None]
  - BLEPHARITIS [None]
  - UPPER RESPIRATORY TRACT INFLAMMATION [None]
  - HERPES ZOSTER [None]
  - POLYARTERITIS NODOSA [None]
  - RENAL INFARCT [None]
  - SUBARACHNOID HAEMORRHAGE [None]
  - CEREBRAL INFARCTION [None]
